FAERS Safety Report 7724230 (Version 5)
Quarter: 2013Q2

REPORT INFORMATION
  Report Type: Spontaneous
  Country: BE (occurrence: BE)
  Receive Date: 20101221
  Receipt Date: 20130517
  Transmission Date: 20140414
  Serious: Yes (Hospitalization)
  Sender: FDA-Public Use
  Company Number: BE-JNJFOC-20101204610

PATIENT
  Age: 41 Year
  Sex: Female
  Weight: 104 kg

DRUGS (3)
  1. STELARA [Suspect]
     Indication: PSORIASIS
     Route: 058
     Dates: start: 20100908
  2. STELARA [Suspect]
     Indication: PSORIASIS
     Route: 058
     Dates: start: 20121205
  3. STELARA [Suspect]
     Indication: PSORIASIS
     Route: 058
     Dates: start: 20090609, end: 20100622

REACTIONS (5)
  - Chronic obstructive pulmonary disease [Recovering/Resolving]
  - Respiratory failure [Not Recovered/Not Resolved]
  - Respiratory syncytial virus infection [Unknown]
  - Bronchiolitis [Recovering/Resolving]
  - Bronchitis [Unknown]
